FAERS Safety Report 6557742-1 (Version None)
Quarter: 2010Q1

REPORT INFORMATION
  Report Type: 
  Country: None (occurrence: None)
  Receive Date: 20100125
  Receipt Date: 20100106
  Transmission Date: 20100710
  Serious: No
  Sender: FDA-Public Use
  Company Number: 2010-00017

PATIENT
  Age: 35 Year
  Sex: Female
  Weight: 52.1637 kg

DRUGS (1)
  1. EXTREME CONGESTION NASAL GEL [Suspect]
     Dosage: ONE DOSE
     Dates: start: 20100102, end: 20100102

REACTIONS (2)
  - ANOSMIA [None]
  - RHINALGIA [None]
